FAERS Safety Report 6600589-8 (Version None)
Quarter: 2010Q1

REPORT INFORMATION
  Report Type: 
  Country: None (occurrence: None)
  Receive Date: 20100224
  Receipt Date: 20100107
  Transmission Date: 20100710
  Serious: No
  Sender: FDA-Public Use
  Company Number: US-BAYER-201010883NA

PATIENT
  Age: 59 Year
  Sex: Male
  Weight: 106 kg

DRUGS (8)
  1. ULTRAVIST 370 [Suspect]
     Indication: COMPUTERISED TOMOGRAM THORAX
     Dosage: TOTAL DAILY DOSE: 80 ML  UNIT DOSE: 500 ML
     Route: 042
     Dates: start: 20100107, end: 20100107
  2. PREDNISONE TAB [Concomitant]
  3. ALTACE [Concomitant]
  4. COREG [Concomitant]
  5. PROTONIX [Concomitant]
  6. HYDROCODONE [Concomitant]
  7. NAPROXEN [Concomitant]
  8. NASONEX [Concomitant]

REACTIONS (2)
  - PRURITUS [None]
  - URTICARIA [None]
